FAERS Safety Report 5075739-8 (Version None)
Quarter: 2006Q3

REPORT INFORMATION
  Report Type: 
  Country: None (occurrence: None)
  Receive Date: 20060809
  Receipt Date: 20051209
  Transmission Date: 20061208
  Serious: No
  Sender: FDA-Public Use
  Company Number: US-AMGEN-US160911

PATIENT
  Sex: Female

DRUGS (3)
  1. EPOGEN [Suspect]
     Indication: PRE-EXISTING DISEASE
     Route: 065
     Dates: start: 20050901
  2. PREDNISONE [Concomitant]
  3. FLORINEF [Concomitant]

REACTIONS (1)
  - BLOOD IRON DECREASED [None]
